FAERS Safety Report 12873132 (Version 6)
Quarter: 2022Q4

REPORT INFORMATION
  Report Type: Spontaneous
  Country: US (occurrence: US)
  Receive Date: 20161021
  Receipt Date: 20221031
  Transmission Date: 20230113
  Serious: Yes (Hospitalization, Other)
  Sender: FDA-Public Use
  Company Number: PHHO2016US013356

PATIENT
  Age: 12 Year
  Sex: Female
  Weight: 50.1 kg

DRUGS (16)
  1. ILARIS [Suspect]
     Active Substance: CANAKINUMAB
     Indication: Still^s disease
     Dosage: 180 MG, QD
     Route: 058
     Dates: start: 20130531, end: 201506
  2. CYCLOSPORINE [Suspect]
     Active Substance: CYCLOSPORINE
     Indication: Still^s disease
     Dosage: 70 MG, QD
     Route: 065
     Dates: start: 201311, end: 201504
  3. CYCLOSPORINE [Suspect]
     Active Substance: CYCLOSPORINE
     Dosage: 100 MG, QD
     Route: 065
     Dates: start: 20150924, end: 201603
  4. KINERET [Suspect]
     Active Substance: ANAKINRA
     Indication: Juvenile idiopathic arthritis
     Dosage: 20 MG, QD
     Route: 065
     Dates: start: 20110919, end: 20130527
  5. KINERET [Suspect]
     Active Substance: ANAKINRA
     Indication: Haemophagocytic lymphohistiocytosis
     Dosage: 100 MG, QD
     Route: 065
     Dates: start: 20151013, end: 20160625
  6. PRIVIGEN [Suspect]
     Active Substance: HUMAN IMMUNOGLOBULIN G
     Indication: Juvenile idiopathic arthritis
     Dosage: 70 G, QD
     Route: 065
     Dates: start: 201603
  7. PROGRAF [Suspect]
     Active Substance: TACROLIMUS
     Indication: Juvenile idiopathic arthritis
     Dosage: 1.6 MG, QD
     Route: 048
     Dates: start: 201504, end: 201507
  8. CLARITIN [Concomitant]
     Active Substance: LORATADINE
     Indication: Product used for unknown indication
     Dosage: UNK
     Route: 065
  9. CALCIUM [Concomitant]
     Active Substance: CALCIUM
     Indication: Osteopenia
     Dosage: 1200 MG, UNK
     Route: 065
  10. FERROUS SULFATE [Concomitant]
     Active Substance: FERROUS SULFATE
     Indication: Anaemia
     Dosage: 325 MG, UNK
     Route: 065
     Dates: start: 20151217
  11. LORATADINE [Concomitant]
     Active Substance: LORATADINE
     Indication: Anaemia
     Dosage: 10 MG, UNK
     Route: 065
  12. RILONACEPT [Concomitant]
     Active Substance: RILONACEPT
     Indication: Still^s disease
     Dosage: 110 MG, QW (WEEKLY)
     Route: 058
     Dates: start: 201606
  13. LISINOPRIL [Concomitant]
     Active Substance: LISINOPRIL
     Indication: Product used for unknown indication
     Dosage: UNK
     Route: 065
  14. NORDITROPIN [Concomitant]
     Active Substance: SOMATROPIN
     Indication: Growth retardation
     Dosage: 1.4 MG, UNK
     Route: 065
     Dates: start: 20140707
  15. VYVANSE [Concomitant]
     Active Substance: LISDEXAMFETAMINE DIMESYLATE
     Indication: Attention deficit hyperactivity disorder
     Dosage: 40 MG, UNK
     Route: 065
  16. IRON [Concomitant]
     Active Substance: IRON
     Indication: Product used for unknown indication
     Dosage: UNK
     Route: 065

REACTIONS (10)
  - Haemophagocytic lymphohistiocytosis [Recovered/Resolved with Sequelae]
  - Gastritis haemorrhagic [Recovered/Resolved]
  - Anaemia [Recovered/Resolved]
  - Fatigue [Recovering/Resolving]
  - Thrombocytopenia [Not Recovered/Not Resolved]
  - Hepatitis [Recovering/Resolving]
  - Bacteraemia [Recovered/Resolved]
  - Leukopenia [Unknown]
  - Osteomyelitis [Unknown]
  - Product use in unapproved indication [Unknown]

NARRATIVE: CASE EVENT DATE: 20160531
